FAERS Safety Report 8823331 (Version 3)
Quarter: 2013Q2

REPORT INFORMATION
  Report Type: Report from Study
  Country: JP (occurrence: JP)
  Receive Date: 20121003
  Receipt Date: 20130513
  Transmission Date: 20140414
  Serious: Yes (Hospitalization, Other)
  Sender: FDA-Public Use
  Company Number: JP-009507513-1209JPN010671

PATIENT
  Age: 53 Year
  Sex: Female
  Weight: 50 kg

DRUGS (10)
  1. PEGINTRON [Suspect]
     Indication: CHRONIC HEPATITIS C
     Dosage: 1.5 MICROGRAM PER KILOGRAM, QW
     Route: 058
     Dates: start: 20120731, end: 20120828
  2. PEGINTRON [Suspect]
     Dosage: 1.5 MICROGRAM PER KILOGRAM, QW
     Route: 058
     Dates: start: 20120911
  3. PEGINTRON [Suspect]
     Dosage: 80 MICROGRAM, UNK
     Route: 058
     Dates: end: 20130108
  4. REBETOL [Suspect]
     Indication: CHRONIC HEPATITIS C
     Dosage: 600 MG, QD
     Route: 048
     Dates: start: 20120731, end: 20120814
  5. REBETOL [Suspect]
     Dosage: 400 MG, QD
     Route: 048
     Dates: start: 20120815, end: 20120827
  6. REBETOL [Suspect]
     Dosage: 200 MG, QD
     Route: 048
     Dates: start: 20120828, end: 20120924
  7. REBETOL [Suspect]
     Dosage: 400 MG,QD
     Route: 048
     Dates: start: 20120925, end: 20130114
  8. TELAVIC [Suspect]
     Indication: CHRONIC HEPATITIS C
     Dosage: 1500 MG, QD
     Route: 048
     Dates: start: 20120731, end: 20120904
  9. LENDORMIN D [Concomitant]
     Dosage: 1 DF, QD
     Route: 048
     Dates: end: 20130114
  10. DERMOVATE [Concomitant]
     Dosage: UNK, PRN
     Route: 061
     Dates: end: 20130114

REACTIONS (2)
  - Urinary tract infection [Recovered/Resolved]
  - Haemoglobin decreased [Unknown]
